FAERS Safety Report 9019560 (Version 4)
Quarter: 2014Q1

REPORT INFORMATION
  Report Type: Spontaneous
  Country: US (occurrence: US)
  Receive Date: 20130118
  Receipt Date: 20140123
  Transmission Date: 20141002
  Serious: Yes (Death, Hospitalization, Disabling, Other)
  Sender: FDA-Public Use
  Company Number: US-009507513-1301USA007503

PATIENT
  Sex: Female
  Weight: 50.9 kg

DRUGS (3)
  1. FOSAMAX [Suspect]
     Indication: OSTEOPENIA
     Dosage: 70 MG, UNK
     Route: 048
     Dates: start: 200112
  2. ALENDRONATE SODIUM [Suspect]
     Indication: OSTEOPOROSIS
     Dosage: 70 MG, UNK
     Route: 048
  3. ALENDRONATE SODIUM [Suspect]
     Indication: OSTEOPENIA

REACTIONS (51)
  - Death [Fatal]
  - Fall [Unknown]
  - Alcohol poisoning [Unknown]
  - Laceration [Unknown]
  - Craniocerebral injury [Unknown]
  - Pancreatic carcinoma metastatic [Unknown]
  - Endoscopic retrograde cholangiopancreatography [Unknown]
  - Biliary dilatation [Unknown]
  - Biliary sphincterotomy [Unknown]
  - Bile duct stent insertion [Unknown]
  - Breast cancer female [Unknown]
  - Lung neoplasm malignant [Unknown]
  - Osteonecrosis of jaw [Not Recovered/Not Resolved]
  - Malignant breast lump removal [Unknown]
  - Biopsy lymph gland [Unknown]
  - Radiotherapy to breast [Unknown]
  - Haemorrhage [Unknown]
  - Bone density decreased [Unknown]
  - Biopsy bone [Unknown]
  - Dental caries [Unknown]
  - Fistula [Unknown]
  - Tooth abscess [Unknown]
  - Dental care [Unknown]
  - Wound [Unknown]
  - Retinal haemorrhage [Unknown]
  - Stress [Unknown]
  - Hyperglycaemia [Unknown]
  - Weight decreased [Unknown]
  - Electrocardiogram ST-T segment abnormal [Unknown]
  - Sinus arrhythmia [Unknown]
  - Lobar pneumonia [Unknown]
  - Lung disorder [Unknown]
  - Familial tremor [Unknown]
  - Lobar pneumonia [Unknown]
  - Cervical radiculopathy [Unknown]
  - Dementia [Unknown]
  - Decreased appetite [Recovered/Resolved]
  - Dehydration [Recovered/Resolved]
  - Hyperkalaemia [Recovered/Resolved]
  - Fatigue [Recovered/Resolved]
  - Macular degeneration [Unknown]
  - Cerebral small vessel ischaemic disease [Unknown]
  - Cerebral atrophy [Unknown]
  - Vitamin B12 deficiency [Unknown]
  - Tooth disorder [Unknown]
  - Jaundice [Unknown]
  - Bile duct stenosis [Unknown]
  - Asthenia [Unknown]
  - Osteomyelitis [Unknown]
  - Diarrhoea [Recovered/Resolved]
  - Dizziness [Unknown]
